FAERS Safety Report 15149461 (Version 1)
Quarter: 2018Q3

REPORT INFORMATION
  Report Type: Spontaneous
  Country: CN (occurrence: CN)
  Receive Date: 20180716
  Receipt Date: 20180716
  Transmission Date: 20181010
  Serious: Yes (Hospitalization, Other)
  Sender: FDA-Public Use
  Company Number: CN-VIIV HEALTHCARE LIMITED-CN2018GSK123799

PATIENT
  Age: 61 Year
  Sex: Male

DRUGS (2)
  1. ADEFOVIR DIPIVOXIL. [Suspect]
     Active Substance: ADEFOVIR DIPIVOXIL
     Indication: HEPATITIS B
     Dosage: UNK
  2. LAMIVUDINE. [Suspect]
     Active Substance: LAMIVUDINE
     Indication: HEPATITIS B
     Dosage: UNK

REACTIONS (11)
  - Arthralgia [Recovered/Resolved]
  - Oedema [Recovered/Resolved]
  - Pain [Recovered/Resolved]
  - Osteoarthritis [Recovered/Resolved]
  - Osteomalacia [Recovered/Resolved]
  - Fanconi syndrome [Recovered/Resolved]
  - Osteoporosis [Recovered/Resolved]
  - Gait disturbance [Recovered/Resolved]
  - Bone marrow oedema [Recovered/Resolved]
  - Breast pain [Unknown]
  - Hypophosphataemia [Recovered/Resolved]
